FAERS Safety Report 5127567-2 (Version None)
Quarter: 2006Q4

REPORT INFORMATION
  Report Type: 
  Country: None (occurrence: None)
  Receive Date: 20061016
  Receipt Date: 20061009
  Transmission Date: 20070319
  Serious: Yes (Other)
  Sender: FDA-Public Use
  Company Number: US-PURDUE-USA_2006_0025334

PATIENT
  Age: 47 Year
  Sex: Male

DRUGS (2)
  1. OXYCONTIN [Suspect]
     Indication: PAIN IN EXTREMITY
     Dosage: 40 MG, SEE TEXT
     Route: 048
     Dates: start: 20020101
  2. AMBIEN [Concomitant]
     Indication: DRUG USE FOR UNKNOWN INDICATION
     Dosage: UNK, PRN

REACTIONS (5)
  - ANGER [None]
  - CONSTIPATION [None]
  - DYSURIA [None]
  - LOOSE TOOTH [None]
  - TOOTH LOSS [None]
